FAERS Safety Report 9022012 (Version 2)
Quarter: 2013Q1

REPORT INFORMATION
  Report Type: Spontaneous
  Country: IN (occurrence: IN)
  Receive Date: 20130118
  Receipt Date: 20130205
  Transmission Date: 20140127
  Serious: Yes (Death, Hospitalization)
  Sender: FDA-Public Use
  Company Number: IN-SANOFI-AVENTIS-2013SA003058

PATIENT
  Age: 31 Year
  Sex: Male

DRUGS (2)
  1. ISONIAZID [Suspect]
     Indication: PRODUCT USED FOR UNKNOWN INDICATION
     Route: 048
  2. RIFAMPICIN [Suspect]
     Indication: PRODUCT USED FOR UNKNOWN INDICATION
     Route: 048

REACTIONS (13)
  - Lactic acidosis [Fatal]
  - Overdose [Fatal]
  - Renal failure [Fatal]
  - Shock [Fatal]
  - Rhabdomyolysis [Fatal]
  - Hepatic function abnormal [Fatal]
  - Chromaturia [Fatal]
  - Coma [Fatal]
  - Respiratory distress [Fatal]
  - Metabolic acidosis [Fatal]
  - Grand mal convulsion [Fatal]
  - Altered state of consciousness [Fatal]
  - Vomiting [Fatal]
